FAERS Safety Report 23861907 (Version 1)
Quarter: 2024Q2

REPORT INFORMATION
  Report Type: Spontaneous
  Country: CA (occurrence: CA)
  Receive Date: 20240516
  Receipt Date: 20240516
  Transmission Date: 20240715
  Serious: Yes (Hospitalization)
  Sender: FDA-Public Use
  Company Number: CA-AUROBINDO-AUR-APL-2024-022471

PATIENT
  Age: 80 Year
  Sex: Male

DRUGS (2)
  1. TRAMADOL HYDROCHLORIDE [Suspect]
     Active Substance: TRAMADOL HYDROCHLORIDE
     Indication: Pain
     Dosage: 2 DOSAGE FORM, FOUR TIMES/DAY
     Route: 065
  2. ELIGARD [Suspect]
     Active Substance: LEUPROLIDE ACETATE
     Indication: Prostate cancer
     Dosage: 22.5 MILLIGRAM, 1 EVERY 3 MONTHS
     Route: 065

REACTIONS (6)
  - Constipation [Unknown]
  - Hot flush [Unknown]
  - Injection site pain [Unknown]
  - Insomnia [Unknown]
  - Intentional product use issue [Unknown]
  - Pain [Unknown]
